FAERS Safety Report 9323821 (Version 1)
Quarter: 2013Q2

REPORT INFORMATION
  Report Type: Spontaneous
  Country: CN (occurrence: CN)
  Receive Date: 20130603
  Receipt Date: 20130603
  Transmission Date: 20140414
  Serious: Yes (Death)
  Sender: FDA-Public Use
  Company Number: CN-JNJFOC-20130521705

PATIENT
  Sex: 0

DRUGS (3)
  1. SPORANOX [Suspect]
     Indication: PULMONARY MYCOSIS
     Route: 048
  2. SPORANOX [Suspect]
     Indication: CHRONIC OBSTRUCTIVE PULMONARY DISEASE
     Route: 048
  3. ANTIBIOTICS [Concomitant]
     Indication: ANTIBIOTIC THERAPY
     Route: 065

REACTIONS (1)
  - Disease progression [Fatal]
